FAERS Safety Report 4642415-2 (Version None)
Quarter: 2005Q2

REPORT INFORMATION
  Report Type: 
  Country: None (occurrence: None)
  Receive Date: 20050422
  Receipt Date: 20031216
  Transmission Date: 20051028
  Serious: Yes (Hospitalization)
  Sender: FDA-Public Use
  Company Number: US-ROCHE-354316

PATIENT
  Sex: Male

DRUGS (2)
  1. PEGASYS [Suspect]
     Indication: DRUG USE FOR UNKNOWN INDICATION
     Dosage: ROUTE OF ADMINISTRATION REPORTED AS: INJECTION.
     Route: 050
     Dates: start: 20031113, end: 20041115
  2. COPEGUS [Suspect]
     Indication: DRUG USE FOR UNKNOWN INDICATION
     Route: 048
     Dates: start: 20031113, end: 20041115

REACTIONS (15)
  - BLOOD URINE PRESENT [None]
  - CHILLS [None]
  - CONDITION AGGRAVATED [None]
  - DECREASED APPETITE [None]
  - DYSURIA [None]
  - FAECAL INCONTINENCE [None]
  - FATIGUE [None]
  - HAEMATOCHEZIA [None]
  - HAEMORRHOIDS [None]
  - HEPATOCELLULAR DAMAGE [None]
  - MYOCARDIAL INFARCTION [None]
  - NAUSEA [None]
  - PROSTATITIS [None]
  - URINARY TRACT INFECTION [None]
  - VIRAL LOAD [None]
